FAERS Safety Report 19744237 (Version 1)
Quarter: 2021Q3

REPORT INFORMATION
  Report Type: Spontaneous
  Country: US (occurrence: US)
  Receive Date: 20210823
  Receipt Date: 20210823
  Transmission Date: 20211014
  Serious: No
  Sender: FDA-Public Use
  Company Number: None

PATIENT
  Sex: Male

DRUGS (1)
  1. BEXAROTENE 75MG AMNEAL PHARMACEUTICALS [Suspect]
     Active Substance: BEXAROTENE
     Indication: CUTANEOUS T-CELL LYMPHOMA
     Route: 048

REACTIONS (3)
  - Blood triglycerides increased [None]
  - Device occlusion [None]
  - Blood cholesterol increased [None]
